FAERS Safety Report 12033455 (Version 1)
Quarter: 2016Q1

REPORT INFORMATION
  Report Type: Report from Study
  Country: US (occurrence: US)
  Receive Date: 20160207
  Receipt Date: 20160207
  Transmission Date: 20160526
  Serious: No
  Sender: FDA-Public Use
  Company Number: US-ABBVIE-15K-163-1516326-00

PATIENT
  Sex: Male

DRUGS (1)
  1. HUMIRA [Suspect]
     Active Substance: ADALIMUMAB
     Indication: CROHN^S DISEASE
     Route: 058
     Dates: start: 20151124, end: 20151124

REACTIONS (8)
  - Dry skin [Unknown]
  - Visual impairment [Recovered/Resolved]
  - Skin discolouration [Unknown]
  - Nausea [Unknown]
  - Pruritus [Unknown]
  - Erythema [Unknown]
  - Anxiety [Recovering/Resolving]
  - Diarrhoea [Unknown]

NARRATIVE: CASE EVENT DATE: 2015
